FAERS Safety Report 5013923-X (Version None)
Quarter: 2006Q2

REPORT INFORMATION
  Report Type: 
  Country: None (occurrence: None)
  Receive Date: 20060525
  Receipt Date: 20060520
  Transmission Date: 20061013
  Serious: Yes (Death)
  Sender: FDA-Public Use
  Company Number: 218118

PATIENT
  Sex: Female
  Weight: 51.3 kg

DRUGS (3)
  1. CAMPTOSAR [Suspect]
     Indication: COLORECTAL CANCER
     Dosage: 200 MG INTRAVENOUS
     Route: 042
     Dates: start: 20050617, end: 20050823
  2. AVASTIN [Suspect]
     Indication: COLORECTAL CANCER
     Dosage: 200 MG INTRAVENOUS
     Route: 042
     Dates: start: 20050617, end: 20050816
  3. LEUCOVORIN CALCIUM [Concomitant]

REACTIONS (1)
  - CARDIAC ARREST [None]
